FAERS Safety Report 25509662 (Version 1)
Quarter: 2025Q3

REPORT INFORMATION
  Report Type: Spontaneous
  Country: US (occurrence: None)
  Receive Date: 20250702
  Receipt Date: 20250702
  Transmission Date: 20251021
  Serious: Yes (Other)
  Sender: FDA-CTU
  Company Number: None

PATIENT
  Age: 14 Year
  Sex: Female

DRUGS (1)
  1. DUPIXENT [Suspect]
     Active Substance: DUPILUMAB
     Dates: start: 20250305, end: 20250702

REACTIONS (7)
  - Dry skin [None]
  - Skin exfoliation [None]
  - Genital dryness [None]
  - Breast discharge [None]
  - Dermatitis [None]
  - Therapy interrupted [None]
  - Adverse drug reaction [None]

NARRATIVE: CASE EVENT DATE: 20250623
